FAERS Safety Report 20227576 (Version 8)
Quarter: 2022Q3

REPORT INFORMATION
  Report Type: Report from Study
  Country: US (occurrence: US)
  Receive Date: 20211224
  Receipt Date: 20220701
  Transmission Date: 20221027
  Serious: Yes (Hospitalization, Other)
  Sender: FDA-Public Use
  Company Number: US-NOVARTISTESTPH-NVSC2021US292673

PATIENT
  Age: 15 Year
  Sex: Male
  Weight: 93.9 kg

DRUGS (27)
  1. TREPROSTINIL [Suspect]
     Active Substance: TREPROSTINIL
     Indication: Pulmonary arterial hypertension
     Dosage: 4.375 MG, QD
     Route: 048
     Dates: start: 20180320, end: 20181112
  2. TREPROSTINIL [Suspect]
     Active Substance: TREPROSTINIL
     Dosage: 50 NG/KG/MIN, CONT
     Route: 058
     Dates: start: 20210708
  3. TREPROSTINIL [Suspect]
     Active Substance: TREPROSTINIL
     Dosage: 51.8 NG/KG/MIN CONTINUOUS DOSED ON WEIGHT OF 90 KG
     Route: 058
  4. TREPROSTINIL [Suspect]
     Active Substance: TREPROSTINIL
     Dosage: 50 NG/KG/MIN, CONT
     Route: 058
     Dates: start: 20210708
  5. CIALIS [Concomitant]
     Active Substance: TADALAFIL
     Indication: Pulmonary arterial hypertension
     Dosage: 40 MG, QD
     Route: 048
  6. CIALIS [Concomitant]
     Active Substance: TADALAFIL
     Dosage: 2 DOSAGE FORM
     Route: 048
  7. ACETAMINOPHEN [Concomitant]
     Active Substance: ACETAMINOPHEN
     Indication: Pain
     Dosage: 2 DOSAGE FORM, PRN
     Route: 048
  8. RHINOCORT ALLERGY [Concomitant]
     Active Substance: BUDESONIDE
     Indication: Product used for unknown indication
     Dosage: 2 DOSAGE FORM, QD (2 SPRAYS INTO AFFECTED NOSTRIL)
     Route: 045
  9. VITAMIN D [Concomitant]
     Active Substance: VITAMIN D NOS
     Indication: Product used for unknown indication
     Dosage: 2.5 DOSAGE FORM, QD (2,000 UNITS), RENEWAL REQUESTS TO AUTHORIZING PROVIDER PROHOBITED, PRESCRIBED U
     Route: 048
     Dates: start: 20210422
  10. VITAMIN D [Concomitant]
     Active Substance: VITAMIN D NOS
     Dosage: 4000 UNITS ONE TIME, QD
     Route: 048
  11. VITAMIN D [Concomitant]
     Active Substance: VITAMIN D NOS
     Dosage: 1 DOSAGE FORM, QD (125 UG)
     Route: 048
  12. VITAMIN D [Concomitant]
     Active Substance: VITAMIN D NOS
     Dosage: UNK
     Route: 065
  13. FERROUS SULFATE [Concomitant]
     Active Substance: FERROUS SULFATE
     Indication: Iron deficiency
     Dosage: 50 MG, QD TAKE UNTIL 06 JUL 2025
     Route: 048
     Dates: start: 20180718
  14. FERROUS SULFATE [Concomitant]
     Active Substance: FERROUS SULFATE
     Dosage: 325 MG, QD (WITH BREAKFAST)
     Route: 048
  15. LASIX [Concomitant]
     Active Substance: FUROSEMIDE
     Indication: Product used for unknown indication
     Dosage: 40-60MG; 40 MG EVERY OTHER DAY AND 60 MG EVERY OTHER DAY, QD
     Route: 048
  16. PRILOSEC [Concomitant]
     Active Substance: OMEPRAZOLE MAGNESIUM
     Indication: Product used for unknown indication
     Dosage: 1 DOSAGE FORM, QD (EVERY MORNING BEFORE BREAKFAST)
     Route: 048
     Dates: start: 20211020
  17. MICARDIS [Concomitant]
     Active Substance: TELMISARTAN
     Indication: Product used for unknown indication
     Dosage: 1 DOSAGE FORM, QD UNTIL 01 JUN 2022
     Route: 048
     Dates: start: 20210601
  18. ZYRTEC [Concomitant]
     Active Substance: CETIRIZINE HYDROCHLORIDE
     Indication: Product used for unknown indication
     Dosage: UNK, (DISCONTINUED)
     Route: 065
  19. PEPCID [Concomitant]
     Active Substance: FAMOTIDINE
     Indication: Product used for unknown indication
     Dosage: 20 MG, QD
     Route: 048
  20. CHOLECALCIFEROL [Concomitant]
     Active Substance: CHOLECALCIFEROL
     Indication: Product used for unknown indication
     Dosage: 2.5 DOSAGE FORM, QD UNTIL 22 APR 2022
     Route: 048
     Dates: start: 20210422
  21. REMODULIN [Concomitant]
     Active Substance: TREPROSTINIL
     Indication: Product used for unknown indication
     Dosage: 0.028 ML/HR
     Route: 065
  22. FUROSEMIDE [Concomitant]
     Active Substance: FUROSEMIDE
     Indication: Product used for unknown indication
     Route: 065
  23. OMEPRAZOLE [Concomitant]
     Active Substance: OMEPRAZOLE
     Indication: Product used for unknown indication
     Dosage: UNK
     Route: 065
  24. TADALAFIL [Concomitant]
     Active Substance: TADALAFIL
     Indication: Pulmonary arterial hypertension
     Dosage: 40 MG, QD
     Route: 048
  25. TELMISARTAN [Concomitant]
     Active Substance: TELMISARTAN
     Indication: Product used for unknown indication
     Dosage: 20 MG, QD
     Route: 048
  26. BOSENTAN [Concomitant]
     Active Substance: BOSENTAN
     Indication: Product used for unknown indication
     Dosage: UNK
     Route: 065
  27. SELEXIPAG [Concomitant]
     Active Substance: SELEXIPAG
     Indication: Product used for unknown indication
     Dosage: UNK
     Route: 065

REACTIONS (25)
  - Loss of consciousness [Recovering/Resolving]
  - Bradycardia [Unknown]
  - Pulmonary arterial hypertension [Unknown]
  - Syncope [Unknown]
  - Presyncope [Recovered/Resolved]
  - Right ventricular failure [Not Recovered/Not Resolved]
  - Wheezing [Unknown]
  - Nervousness [Unknown]
  - Nasopharyngitis [Unknown]
  - Somnolence [Unknown]
  - Nasal congestion [Recovering/Resolving]
  - Disorientation [Unknown]
  - Palpitations [Unknown]
  - Hypoaesthesia [Unknown]
  - Injection site abscess [Unknown]
  - Injection site erythema [Unknown]
  - Injection site swelling [Unknown]
  - Injection site warmth [Unknown]
  - Injection site infection [Unknown]
  - Injection site induration [Unknown]
  - Dyspnoea [Unknown]
  - Dizziness [Unknown]
  - Paraesthesia [Unknown]
  - Cough [Unknown]
  - Infusion site reaction [Recovered/Resolved]

NARRATIVE: CASE EVENT DATE: 20220218
